FAERS Safety Report 9179829 (Version 1)
Quarter: 2013Q1

REPORT INFORMATION
  Report Type: Spontaneous
  Country: BR (occurrence: BR)
  Receive Date: 20130321
  Receipt Date: 20130321
  Transmission Date: 20140127
  Serious: Yes (Other)
  Sender: FDA-Public Use
  Company Number: BR-PFIZER INC-2013087491

PATIENT
  Age: 69 Year
  Sex: Female

DRUGS (6)
  1. PREMARIN [Suspect]
     Indication: HORMONE THERAPY
     Dosage: 1 TABLET (0.3 MG), 1X/DAY
     Route: 048
     Dates: start: 20080305
  2. ATORVASTATIN CALCIUM [Concomitant]
     Indication: BLOOD CHOLESTEROL INCREASED
     Dosage: UNK
  3. DIOVAN AMLO FIX [Concomitant]
     Indication: HYPERTENSION
     Dosage: 320/ 5, UNK
  4. NATRILIX SR [Concomitant]
     Indication: HYPERTENSION
     Dosage: UNK
  5. RIVOTRIL [Concomitant]
     Indication: DEPRESSION
     Dosage: UNK
  6. RETEMIC UD [Concomitant]
     Indication: URINARY RETENTION
     Dosage: 10, UNK

REACTIONS (1)
  - Intracranial aneurysm [Unknown]
